FAERS Safety Report 10011647 (Version 1)
Quarter: 2014Q1

REPORT INFORMATION
  Report Type: Spontaneous
  Country: NL (occurrence: NL)
  Receive Date: 20140314
  Receipt Date: 20140314
  Transmission Date: 20141002
  Serious: Yes (Hospitalization, Other)
  Sender: FDA-Public Use
  Company Number: NL-JNJFOC-20140302297

PATIENT
  Sex: 0

DRUGS (4)
  1. DOXORUBICIN [Suspect]
     Indication: BREAST CANCER
     Route: 042
  2. DOCETAXEL [Suspect]
     Indication: BREAST CANCER
     Route: 065
  3. CYCLOPHOSPHAMIDE [Suspect]
     Indication: BREAST CANCER
     Route: 065
  4. GRANULOCYTE COLONY-STIMULATING FACTOR NOS [Concomitant]
     Indication: PROPHYLAXIS
     Route: 065

REACTIONS (15)
  - Neutropenia [Unknown]
  - Pyrexia [Unknown]
  - Platelet disorder [Unknown]
  - Haemoglobin abnormal [Unknown]
  - Mucosal inflammation [Unknown]
  - Nausea [Unknown]
  - Vomiting [Unknown]
  - Neurological symptom [Unknown]
  - Musculoskeletal disorder [Unknown]
  - Febrile neutropenia [Unknown]
  - Febrile neutropenia [Unknown]
  - Respiratory tract infection [Unknown]
  - Infection [Unknown]
  - Infection [Unknown]
  - Bacterial infection [Unknown]
